FAERS Safety Report 4447133-1 (Version None)
Quarter: 2004Q3

REPORT INFORMATION
  Report Type: 
  Country: None (occurrence: None)
  Receive Date: 20040907
  Receipt Date: 20040907
  Transmission Date: 20050211
  Serious: No
  Sender: FDA-Public Use
  Company Number: None

PATIENT

DRUGS (1)
  1. DEXAMETHASONE [Suspect]
     Dosage: INJECTABLE

REACTIONS (3)
  - DISCOMFORT [None]
  - GENITAL BURNING SENSATION [None]
  - MEDICATION ERROR [None]
